FAERS Safety Report 14245950 (Version 1)
Quarter: 2017Q4

REPORT INFORMATION
  Report Type: Spontaneous
  Country: FR (occurrence: FR)
  Receive Date: 20171204
  Receipt Date: 20171204
  Transmission Date: 20180321
  Serious: Yes (Hospitalization)
  Sender: FDA-Public Use
  Company Number: FR-ROCHE-2030256

PATIENT
  Age: 35 Year
  Sex: Male

DRUGS (8)
  1. ZOPICLONE [Suspect]
     Active Substance: ZOPICLONE
     Indication: PRODUCT USED FOR UNKNOWN INDICATION
     Route: 065
     Dates: start: 20170622, end: 20170622
  2. METHADONE [Concomitant]
     Active Substance: METHADONE HYDROCHLORIDE
     Dosage: 60 MG IN THE MORNING, 40 MG IN THE EVENING
     Route: 065
  3. STILNOX [Concomitant]
     Active Substance: ZOLPIDEM TARTRATE
  4. VALIUM [Suspect]
     Active Substance: DIAZEPAM
     Route: 065
     Dates: start: 20170622, end: 20170622
  5. COCAINE [Suspect]
     Active Substance: COCAINE
     Route: 042
     Dates: start: 20170622, end: 20170622
  6. VALIUM [Suspect]
     Active Substance: DIAZEPAM
     Indication: PRODUCT USED FOR UNKNOWN INDICATION
     Route: 065
  7. COCAINE [Suspect]
     Active Substance: COCAINE
     Indication: PRODUCT USED FOR UNKNOWN INDICATION
     Route: 042
  8. ALCOHOL. [Suspect]
     Active Substance: ALCOHOL
     Indication: PRODUCT USED FOR UNKNOWN INDICATION
     Route: 048
     Dates: start: 20170622, end: 20170622

REACTIONS (3)
  - Secondary adrenocortical insufficiency [Not Recovered/Not Resolved]
  - Hypoglycaemia [Recovered/Resolved]
  - Pacemaker generated arrhythmia [Recovered/Resolved]

NARRATIVE: CASE EVENT DATE: 20170622
